FAERS Safety Report 5992551-3 (Version None)
Quarter: 2008Q4

REPORT INFORMATION
  Report Type: 
  Country: None (occurrence: None)
  Receive Date: 20081211
  Receipt Date: 20080520
  Transmission Date: 20090506
  Serious: No
  Sender: FDA-Public Use
  Company Number: US-AMGEN-KDL281271

PATIENT
  Sex: Male

DRUGS (2)
  1. ENBREL [Suspect]
     Indication: PSORIATIC ARTHROPATHY
     Route: 058
     Dates: start: 20021125
  2. ENBREL [Suspect]
     Indication: PSORIASIS

REACTIONS (10)
  - ARTHRALGIA [None]
  - ARTHRITIS [None]
  - DIABETES MELLITUS [None]
  - DRUG INTERACTION [None]
  - JOINT EFFUSION [None]
  - JOINT STIFFNESS [None]
  - JOINT SWELLING [None]
  - MOBILITY DECREASED [None]
  - PSORIASIS [None]
  - PSORIATIC ARTHROPATHY [None]
